FAERS Safety Report 8569488-9 (Version None)
Quarter: 2012Q3

REPORT INFORMATION
  Report Type: 
  Country: None (occurrence: None)
  Receive Date: 20120803
  Receipt Date: 20120727
  Transmission Date: 20120928
  Serious: Yes (Hospitalization)
  Sender: FDA-Public Use
  Company Number: US-B.I. PHARMACEUTICALS,INC./RIDGEFIELD-2011-BP-28907BP

PATIENT
  Sex: Male

DRUGS (6)
  1. PRADAXA [Suspect]
     Indication: ATRIAL FIBRILLATION
     Dosage: 300 MG
     Route: 048
     Dates: start: 20110601
  2. VITAMIN E [Concomitant]
     Indication: PROPHYLAXIS
     Route: 048
  3. ALBUTEROL [Concomitant]
     Indication: ASTHMA
  4. ATENOLOL [Concomitant]
     Indication: HEART RATE ABNORMAL
     Route: 048
     Dates: start: 19900101
  5. FISH OIL [Concomitant]
     Indication: PROPHYLAXIS
     Route: 048
  6. BENADRYL [Concomitant]
     Indication: HYPERSENSITIVITY
     Dosage: 25 MG
     Route: 048
     Dates: start: 19900101

REACTIONS (5)
  - CONTUSION [None]
  - BONE DISORDER [None]
  - SKIN DISCOLOURATION [None]
  - HAEMORRHAGE [None]
  - BLOOD TEST ABNORMAL [None]
